FAERS Safety Report 4268609-6 (Version None)
Quarter: 2004Q1

REPORT INFORMATION
  Report Type: 
  Country: None (occurrence: None)
  Receive Date: 20040109
  Receipt Date: 20040109
  Transmission Date: 20041129
  Serious: Yes (Hospitalization)
  Sender: FDA-Public Use
  Company Number: None

PATIENT
  Age: 52 Year
  Sex: Female
  Weight: 52.9 kg

DRUGS (1)
  1. CISPLATIN [Suspect]
     Indication: LARYNGEAL CANCER STAGE IV
     Dosage: 150 MG
     Dates: start: 20031215

REACTIONS (4)
  - BLOOD CULTURE POSITIVE [None]
  - CATHETER SEPSIS [None]
  - CENTRAL LINE INFECTION [None]
  - PAIN [None]
